FAERS Safety Report 13066464 (Version 2)
Quarter: 2017Q2

REPORT INFORMATION
  Report Type: Spontaneous
  Country: US (occurrence: US)
  Receive Date: 20161227
  Receipt Date: 20170419
  Transmission Date: 20170830
  Serious: Yes (Hospitalization)
  Sender: FDA-Public Use
  Company Number: US-SA-2016SA231734

PATIENT
  Age: 71 Year

DRUGS (2)
  1. LEUKINE [Suspect]
     Active Substance: SARGRAMOSTIM
     Route: 058
     Dates: start: 20111027, end: 20111107
  2. ALKERAN [Suspect]
     Active Substance: MELPHALAN
     Indication: PLASMA CELL MYELOMA
     Dosage: DOSE: 187
     Route: 042
     Dates: start: 20111024, end: 20111025

REACTIONS (2)
  - Pneumonia legionella [Recovered/Resolved]
  - Respiratory failure [Recovered/Resolved]

NARRATIVE: CASE EVENT DATE: 20111102
